FAERS Safety Report 10661636 (Version 1)
Quarter: 2014Q4

REPORT INFORMATION
  Report Type: Spontaneous
  Country: JP (occurrence: JP)
  Receive Date: 20141218
  Receipt Date: 20141218
  Transmission Date: 20150529
  Serious: Yes (Hospitalization)
  Sender: FDA-Public Use
  Company Number: JP-PFIZER INC-2014344384

PATIENT
  Sex: Male

DRUGS (4)
  1. OXINORM [Concomitant]
     Active Substance: OXYCODONE HYDROCHLORIDE
  2. INLYTA [Suspect]
     Active Substance: AXITINIB
     Indication: RENAL CANCER RECURRENT
     Dosage: 2 UNK, UNK
     Route: 048
  3. INLYTA [Suspect]
     Active Substance: AXITINIB
     Dosage: 1 UNK, UNK
  4. MEXITIL [Concomitant]
     Active Substance: MEXILETINE HYDROCHLORIDE

REACTIONS (1)
  - Aggression [Unknown]
